FAERS Safety Report 20239133 (Version 6)
Quarter: 2022Q1

REPORT INFORMATION
  Report Type: Report from Study
  Country: US (occurrence: US)
  Receive Date: 20211228
  Receipt Date: 20220303
  Transmission Date: 20220423
  Serious: Yes (Hospitalization, Other)
  Sender: FDA-Public Use
  Company Number: US-JAZZ-2021-US-022227

PATIENT
  Sex: Male

DRUGS (3)
  1. XYWAV [Suspect]
     Active Substance: CALCIUM OXYBATE\MAGNESIUM OXYBATE\POTASSIUM OXYBATE\SODIUM OXYBATE
     Indication: Hypersomnia
     Dosage: 2.25 GRAM, BID
     Route: 048
     Dates: start: 202111
  2. ARMODAFINIL [Concomitant]
     Active Substance: ARMODAFINIL
     Indication: Product used for unknown indication
     Dosage: UNK MILLIGRAM
     Route: 048
     Dates: start: 20211112
  3. ACETAMINOPHEN\OXYCODONE HYDROCHLORIDE\OXYCODONE TEREPHTHALATE [Concomitant]
     Active Substance: ACETAMINOPHEN\OXYCODONE HYDROCHLORIDE\OXYCODONE TEREPHTHALATE
     Indication: Product used for unknown indication
     Dosage: 5-325 MG
     Dates: start: 20211217

REACTIONS (13)
  - Limb operation [Unknown]
  - Dry eye [Unknown]
  - Abnormal sensation in eye [Unknown]
  - Photophobia [Unknown]
  - Dry skin [Unknown]
  - Tinnitus [Unknown]
  - Headache [Unknown]
  - Insomnia [Recovered/Resolved]
  - Condition aggravated [Unknown]
  - Dry mouth [Unknown]
  - Hallucination [Unknown]
  - Product dose omission issue [Unknown]
  - Product administration interrupted [Unknown]
